FAERS Safety Report 16529984 (Version 4)
Quarter: 2020Q2

REPORT INFORMATION
  Report Type: Report from Study
  Country: US (occurrence: US)
  Receive Date: 20190704
  Receipt Date: 20200411
  Transmission Date: 20200713
  Serious: No
  Sender: FDA-Public Use
  Company Number: PHEH2019US027759

PATIENT
  Sex: Female

DRUGS (1)
  1. GILENYA [Suspect]
     Active Substance: FINGOLIMOD HYDROCHLORIDE
     Indication: MULTIPLE SCLEROSIS
     Dosage: 0.5 MG, QD
     Route: 048
     Dates: start: 20130909

REACTIONS (14)
  - Burning sensation [Unknown]
  - Nausea [Recovered/Resolved]
  - Herpes zoster [Unknown]
  - Cystitis [Recovered/Resolved]
  - Feeling abnormal [Recovered/Resolved]
  - Thermal burn [Unknown]
  - Urinary tract infection [Recovered/Resolved]
  - Weight decreased [Recovering/Resolving]
  - Pyrexia [Recovered/Resolved]
  - Dysarthria [Recovered/Resolved]
  - Band sensation [Recovering/Resolving]
  - Visual impairment [Unknown]
  - Peroneal nerve palsy [Unknown]
  - Seasonal allergy [Unknown]
